FAERS Safety Report 8310663-6 (Version None)
Quarter: 2012Q2

REPORT INFORMATION
  Report Type: 
  Country: None (occurrence: None)
  Receive Date: 20120425
  Receipt Date: 20120413
  Transmission Date: 20120825
  Serious: Yes (Hospitalization, Other)
  Sender: FDA-Public Use
  Company Number: NL-JNJFOC-20120409743

PATIENT
  Age: 50 Year
  Sex: Male

DRUGS (1)
  1. HALOPERIDOL [Suspect]
     Indication: ATTENTION DEFICIT/HYPERACTIVITY DISORDER
     Route: 065

REACTIONS (5)
  - ALCOHOL ABUSE [None]
  - DRUG ABUSE [None]
  - PSYCHOTIC DISORDER [None]
  - DRUG RESISTANCE [None]
  - SCHIZOPHRENIA, PARANOID TYPE [None]
